FAERS Safety Report 23124745 (Version 1)
Quarter: 2023Q4

REPORT INFORMATION
  Report Type: Spontaneous
  Country: US (occurrence: US)
  Receive Date: 20231030
  Receipt Date: 20231030
  Transmission Date: 20240109
  Serious: No
  Sender: FDA-Public Use
  Company Number: US-OPELLA-2023OHG010205

PATIENT
  Sex: Female

DRUGS (1)
  1. ALLEGRA HIVES 24HR [Suspect]
     Active Substance: FEXOFENADINE HYDROCHLORIDE
     Route: 065
     Dates: start: 20230926

REACTIONS (4)
  - Condition aggravated [Unknown]
  - Rash erythematous [Unknown]
  - Rash pruritic [Unknown]
  - Lip swelling [Unknown]

NARRATIVE: CASE EVENT DATE: 20230927
